FAERS Safety Report 7354713-2 (Version None)
Quarter: 2011Q1

REPORT INFORMATION
  Report Type: 
  Country: None (occurrence: None)
  Receive Date: 20110304
  Receipt Date: 20110217
  Transmission Date: 20110831
  Serious: Yes (Hospitalization)
  Sender: FDA-Public Use
  Company Number: 2011-00250

PATIENT
  Sex: Female

DRUGS (4)
  1. LISINOPRIL [Concomitant]
  2. CITALOPRAM [Concomitant]
  3. DILTIAZEM HYDROCHLORIDE (ADIZEM-SR) [Concomitant]
  4. SIMVASTATIN [Suspect]
     Indication: HYPERCHOLESTEROLAEMIA
     Dosage: 40 MG (40 MG, 1 IN 1 D) ORAL
     Route: 048
     Dates: start: 20090401, end: 20110126

REACTIONS (3)
  - RHABDOMYOLYSIS [None]
  - SINUS ARRHYTHMIA [None]
  - CHEST PAIN [None]
